FAERS Safety Report 15295670 (Version 5)
Quarter: 2018Q4

REPORT INFORMATION
  Report Type: Report from Study
  Country: BR (occurrence: BR)
  Receive Date: 20180820
  Receipt Date: 20181108
  Transmission Date: 20190204
  Serious: Yes (Other)
  Sender: FDA-Public Use
  Company Number: BR-GLAXOSMITHKLINE-BR2018GSK149080

PATIENT
  Sex: Male
  Weight: 123 kg

DRUGS (2)
  1. BELIMUMAB [Suspect]
     Active Substance: BELIMUMAB
     Dosage: 1120 MG, UNK
     Route: 042
     Dates: start: 20180925
  2. BELIMUMAB [Suspect]
     Active Substance: BELIMUMAB
     Indication: SYSTEMIC LUPUS ERYTHEMATOSUS
     Dosage: 1134 MG, UNK
     Route: 042
     Dates: start: 201405

REACTIONS (2)
  - Neoplasm malignant [Unknown]
  - Product dose omission [Recovered/Resolved]
